FAERS Safety Report 6420084-9 (Version None)
Quarter: 2009Q4

REPORT INFORMATION
  Report Type: 
  Country: None (occurrence: None)
  Receive Date: 20091029
  Receipt Date: 20091019
  Transmission Date: 20100525
  Serious: Yes (Other)
  Sender: FDA-Public Use
  Company Number: US-PFIZER INC-2009287276

PATIENT
  Sex: Male
  Weight: 99.773 kg

DRUGS (13)
  1. LIPITOR [Suspect]
     Indication: BLOOD CHOLESTEROL INCREASED
     Dosage: 10 MG, 1X/DAY
     Route: 048
  2. LIPITOR [Suspect]
     Indication: CARDIAC FAILURE CONGESTIVE
     Dosage: 20 MG, 1X/DAY
     Route: 048
  3. LIPITOR [Suspect]
     Indication: THROMBOSIS
  4. FUROSEMIDE [Concomitant]
     Indication: FLUID RETENTION
     Dosage: FREQUENCY: 2X/DAY,
     Route: 048
  5. LISINOPRIL [Concomitant]
     Dosage: 30 MG, 1X/DAY
     Route: 048
  6. DIGOXIN [Concomitant]
     Indication: HEART RATE
     Dosage: 0.125 MG, 1X/DAY
     Route: 048
  7. TRICOR [Concomitant]
     Dosage: 145 MG, 1X/DAY
     Route: 048
  8. ALLOPURINOL [Concomitant]
     Dosage: 100 MG, 1X/DAY
     Route: 048
  9. CARVEDILOL [Concomitant]
     Dosage: 12.5 MG, 2X/DAY
     Route: 048
  10. WARFARIN SODIUM [Concomitant]
     Dosage: UNK
     Route: 048
  11. TAMSULOSIN HYDROCHLORIDE [Concomitant]
     Dosage: 0.4 MG, 1X/DAY
     Route: 048
  12. FISH OIL [Concomitant]
     Dosage: 1000 MG, UNK
  13. MULTI-VITAMINS [Concomitant]
     Dosage: UNK

REACTIONS (3)
  - CATARACT OPERATION [None]
  - MUSCLE ATROPHY [None]
  - PAIN IN EXTREMITY [None]
